FAERS Safety Report 17027242 (Version 1)
Quarter: 2019Q4

REPORT INFORMATION
  Report Type: Spontaneous
  Country: US (occurrence: US)
  Receive Date: 20191009
  Receipt Date: 20191009
  Transmission Date: 20200122
  Serious: Yes (Disabling)
  Sender: FDA-Public Use
  Company Number: None

PATIENT
  Age: 25 Year
  Sex: Female
  Weight: 58.06 kg

DRUGS (8)
  1. BLISOVI FE [Concomitant]
  2. DEPAKOTE ER [Suspect]
     Active Substance: DIVALPROEX SODIUM
     Indication: TREMOR
     Dates: start: 2017
  3. RISPERDAL [Suspect]
     Active Substance: RISPERIDONE
     Dates: start: 201804
  4. DOCUSATE SODIUM 100MG [Concomitant]
     Active Substance: DOCUSATE SODIUM
  5. MEDROXYPROGESTERONE 10MG [Concomitant]
     Active Substance: MEDROXYPROGESTERONE ACETATE
  6. TRIHEXYPHENIDYL [Suspect]
     Active Substance: TRIHEXYPHENIDYL
     Dates: start: 201804
  7. TYLENOL [Concomitant]
     Active Substance: ACETAMINOPHEN
  8. DEPAKOTE ER [Suspect]
     Active Substance: DIVALPROEX SODIUM
     Indication: BIPOLAR DISORDER
     Dates: start: 2017

REACTIONS (13)
  - Intentional self-injury [None]
  - Anger [None]
  - Depression [None]
  - Tremor [None]
  - Oropharyngeal pain [None]
  - Musculoskeletal stiffness [None]
  - Constipation [None]
  - Emotional poverty [None]
  - Weight increased [None]
  - Alopecia [None]
  - Cough [None]
  - Tooth discolouration [None]
  - Anxiety [None]

NARRATIVE: CASE EVENT DATE: 20180420
